FAERS Safety Report 23789500 (Version 1)
Quarter: 2024Q2

REPORT INFORMATION
  Report Type: Spontaneous
  Country: US (occurrence: None)
  Receive Date: 20240426
  Receipt Date: 20240426
  Transmission Date: 20240715
  Serious: No
  Sender: FDA-Public Use
  Company Number: None

PATIENT
  Sex: Male
  Weight: 102.4 kg

DRUGS (3)
  1. FLUOROURACIL [Suspect]
     Active Substance: FLUOROURACIL
  2. LEUCOVORIN CALCIUM [Concomitant]
  3. OXALIPLATIN (ELOXATIN) [Concomitant]

REACTIONS (3)
  - Paraesthesia [None]
  - Dyskinesia [None]
  - Neuropathy peripheral [None]

NARRATIVE: CASE EVENT DATE: 20240416
